FAERS Safety Report 25724967 (Version 1)
Quarter: 2025Q3

REPORT INFORMATION
  Report Type: Spontaneous
  Country: EU (occurrence: EU)
  Receive Date: 20250826
  Receipt Date: 20250826
  Transmission Date: 20251020
  Serious: Yes (Life-Threatening, Other)
  Sender: IMMUNOCORE
  Company Number: EU-Medison-001512

PATIENT

DRUGS (1)
  1. KIMMTRAK [Suspect]
     Active Substance: TEBENTAFUSP-TEBN
     Indication: Metastatic ocular melanoma
     Dates: start: 20241125, end: 20250729

REACTIONS (2)
  - Disease progression [Unknown]
  - Metastasis [Unknown]

NARRATIVE: CASE EVENT DATE: 20250805
